FAERS Safety Report 9926445 (Version 1)
Quarter: 2014Q1

REPORT INFORMATION
  Report Type: Spontaneous
  Country: US (occurrence: US)
  Receive Date: 20140226
  Receipt Date: 20140226
  Transmission Date: 20141002
  Serious: No
  Sender: FDA-Public Use
  Company Number: US-AMGEN-USASP2013069070

PATIENT
  Age: 69 Year
  Sex: Female

DRUGS (2)
  1. ENBREL [Suspect]
     Indication: RHEUMATOID ARTHRITIS
     Dosage: UNK
     Route: 065
     Dates: start: 20130901
  2. ENBREL [Suspect]
     Indication: PSORIASIS

REACTIONS (4)
  - Hearing impaired [Not Recovered/Not Resolved]
  - Ear pain [Not Recovered/Not Resolved]
  - Ear infection [Not Recovered/Not Resolved]
  - Psoriasis [Not Recovered/Not Resolved]
